FAERS Safety Report 5217471-3 (Version None)
Quarter: 2007Q1

REPORT INFORMATION
  Report Type: 
  Country: None (occurrence: None)
  Receive Date: 20070119
  Receipt Date: 20070103
  Transmission Date: 20070707
  Serious: Yes (Death, Hospitalization)
  Sender: FDA-Public Use
  Company Number: 2007000021

PATIENT
  Age: 67 Year
  Sex: Male

DRUGS (15)
  1. ERLOTINIB (TABLET) [Suspect]
     Indication: NON-SMALL CELL LUNG CANCER
     Dosage: 150 MG (QD), ORAL
     Route: 048
     Dates: start: 20060117, end: 20060413
  2. ERLOTINIB (TABLET) [Suspect]
     Indication: NON-SMALL CELL LUNG CANCER
     Dosage: 150 MG (QD), ORAL
     Route: 048
     Dates: start: 20060421, end: 20060905
  3. METFORMIN HCL [Concomitant]
  4. GLIMEPIRIDE [Concomitant]
  5. MONTELUKAST (MONTELUKAST) [Concomitant]
  6. TAMSULOSIN HCL [Concomitant]
  7. TRIAMCINOLONE [Concomitant]
  8. SENNOSIDE [Concomitant]
  9. CLARINASE (CLARINASE) [Concomitant]
  10. ACETAMINOPHEN [Concomitant]
  11. UNASYN [Concomitant]
  12. HYDROXYZINE HCL [Concomitant]
  13. LEVOFLOXACIN [Concomitant]
  14. METOCLOPRAMIDE [Concomitant]
  15. SALMETEROL (SALMETEROL) [Concomitant]

REACTIONS (10)
  - BRONCHIECTASIS [None]
  - BRONCHOSCOPY ABNORMAL [None]
  - HAEMOPTYSIS [None]
  - LUNG CONSOLIDATION [None]
  - NECROSIS [None]
  - PLEURAL EFFUSION [None]
  - PNEUMONIA [None]
  - PNEUMOTHORAX [None]
  - PULMONARY CAVITATION [None]
  - SUBCUTANEOUS EMPHYSEMA [None]
